FAERS Safety Report 7241381-3 (Version None)
Quarter: 2011Q1

REPORT INFORMATION
  Report Type: 
  Country: None (occurrence: None)
  Receive Date: 20110124
  Receipt Date: 20110118
  Transmission Date: 20110831
  Serious: Yes (Life-Threatening)
  Sender: FDA-Public Use
  Company Number: JP-ASTRAZENECA-2011SE02595

PATIENT
  Age: 59 Year
  Sex: Male
  Weight: 77 kg

DRUGS (4)
  1. CRESTOR [Suspect]
     Indication: DYSLIPIDAEMIA
     Route: 048
     Dates: start: 20100511, end: 20101212
  2. NOVORAPID 30 MIX [Concomitant]
     Indication: DIABETES MELLITUS
     Route: 058
     Dates: start: 20081013
  3. MEXITIL [Concomitant]
     Indication: DIABETIC NEUROPATHY
     Route: 048
     Dates: start: 20090728, end: 20101212
  4. METHYCOBAL [Concomitant]
     Indication: DIABETIC NEUROPATHY
     Route: 048
     Dates: start: 20090728, end: 20101212

REACTIONS (1)
  - LIVER DISORDER [None]
